FAERS Safety Report 17117930 (Version 2)
Quarter: 2019Q4

REPORT INFORMATION
  Report Type: Report from Study
  Country: US (occurrence: US)
  Receive Date: 20191205
  Receipt Date: 20191219
  Transmission Date: 20200122
  Serious: Yes (Other)
  Sender: FDA-Public Use
  Company Number: US-ACTELION-A-US2019-195025

PATIENT
  Age: 55 Year
  Sex: Male

DRUGS (1)
  1. OPSUMIT [Suspect]
     Active Substance: MACITENTAN
     Indication: PULMONARY ARTERIAL HYPERTENSION
     Dosage: 10 MG, QD
     Route: 048
     Dates: start: 20190724

REACTIONS (10)
  - Joint effusion [Not Recovered/Not Resolved]
  - Somnolence [Not Recovered/Not Resolved]
  - Ear tube insertion [Not Recovered/Not Resolved]
  - Blood bilirubin [Recovering/Resolving]
  - Sinus headache [Unknown]
  - Arthralgia [Not Recovered/Not Resolved]
  - Fatigue [Not Recovered/Not Resolved]
  - Retinal detachment [Not Recovered/Not Resolved]
  - Epistaxis [Unknown]
  - Confusional state [Not Recovered/Not Resolved]

NARRATIVE: CASE EVENT DATE: 20191104
